FAERS Safety Report 11733169 (Version 1)
Quarter: 2015Q4

REPORT INFORMATION
  Report Type: Spontaneous
  Country: US (occurrence: US)
  Receive Date: 20151110
  Receipt Date: 20151110
  Transmission Date: 20160304
  Serious: No
  Sender: FDA-Public Use
  Company Number: US-ELI_LILLY_AND_COMPANY-US201201004985

PATIENT
  Age: 81 Year
  Sex: Male

DRUGS (3)
  1. FORTEO [Suspect]
     Active Substance: TERIPARATIDE
     Dosage: 20 UG, QD
     Route: 065
  2. LEVAQUIN [Concomitant]
     Active Substance: LEVOFLOXACIN
  3. FORTEO [Suspect]
     Active Substance: TERIPARATIDE
     Indication: OSTEOPOROSIS
     Dosage: 20 UG, QD
     Route: 065
     Dates: start: 20120124

REACTIONS (8)
  - Injection site bruising [Unknown]
  - Arthralgia [Unknown]
  - Joint effusion [Unknown]
  - Joint stiffness [Unknown]
  - Joint swelling [Unknown]
  - Fatigue [Recovered/Resolved]
  - Mobility decreased [Unknown]
  - Gout [Unknown]

NARRATIVE: CASE EVENT DATE: 201204
